FAERS Safety Report 16253521 (Version 2)
Quarter: 2019Q2

REPORT INFORMATION
  Report Type: Spontaneous
  Country: JP (occurrence: JP)
  Receive Date: 20190430
  Receipt Date: 20190523
  Transmission Date: 20190711
  Serious: No
  Sender: FDA-Public Use
  Company Number: JP-ALK-ABELLO A/S-2019AA001687

PATIENT

DRUGS (3)
  1. MITICURE MITE SUBLINGUAL TABLET [Suspect]
     Active Substance: DERMATOPHAGOIDES FARINAE\DERMATOPHAGOIDES PTERONYSSINUS
     Indication: PRODUCT USED FOR UNKNOWN INDICATION
     Dosage: 10000 JAU, QD
     Route: 060
  2. FOLIAMIN [Concomitant]
     Active Substance: FOLIC ACID
     Route: 048
  3. BUFFERIN                           /00009201/ [Concomitant]
     Active Substance: ASPIRIN\DIHYDROXYALUMINUM AMINOACETATE ANHYDROUS\MAGNESIUM CARBONATE
     Dosage: 81 MILLIGRAM
     Route: 048

REACTIONS (2)
  - Pregnancy [Unknown]
  - Uterine hypertonus [Unknown]
